FAERS Safety Report 10510092 (Version 1)
Quarter: 2014Q4

REPORT INFORMATION
  Report Type: Spontaneous
  Country: US (occurrence: None)
  Receive Date: 20141009
  Receipt Date: 20141009
  Transmission Date: 20150528
  Serious: Yes (Life-Threatening, Other)
  Sender: FDA-Public Use
  Company Number: None

PATIENT
  Age: 85 Year
  Sex: Male

DRUGS (8)
  1. AMLODIPINE [Concomitant]
     Active Substance: AMLODIPINE BESYLATE
  2. INSULIN (HUMALOG + LENTE) [Concomitant]
  3. MULTI VIT [Concomitant]
  4. ALPHA LIPOIC ACID [Suspect]
     Active Substance: .ALPHA.-LIPOIC ACID
     Indication: NEUROPATHY PERIPHERAL
     Dosage: 600 MG, 60 CAPS, T/D, PO
     Route: 048
     Dates: start: 20140923, end: 20140923
  5. LISINOPRIL. [Concomitant]
     Active Substance: LISINOPRIL
  6. DIAMOX SEQUELS [Concomitant]
     Active Substance: ACETAZOLAMIDE
  7. CA + VIT D [Concomitant]
  8. FISH OIL [Concomitant]
     Active Substance: FISH OIL

REACTIONS (3)
  - Syncope [None]
  - Fall [None]
  - Hypoglycaemia [None]
